FAERS Safety Report 11618528 (Version 1)
Quarter: 2015Q4

REPORT INFORMATION
  Report Type: Spontaneous
  Country: US (occurrence: US)
  Receive Date: 20151012
  Receipt Date: 20151012
  Transmission Date: 20160304
  Serious: No
  Sender: FDA-Public Use
  Company Number: US-TEVA-518522USA

PATIENT
  Sex: Female

DRUGS (1)
  1. SPRINTEC [Suspect]
     Active Substance: ETHINYL ESTRADIOL\NORGESTIMATE

REACTIONS (5)
  - Migraine [Unknown]
  - Speech disorder [Unknown]
  - Vomiting [Unknown]
  - Metrorrhagia [Unknown]
  - Paraesthesia [Unknown]
